FAERS Safety Report 21451709 (Version 2)
Quarter: 2022Q4

REPORT INFORMATION
  Report Type: Spontaneous
  Country: BG (occurrence: BG)
  Receive Date: 20221013
  Receipt Date: 20221028
  Transmission Date: 20230113
  Serious: Yes (Hospitalization)
  Sender: FDA-Public Use
  Company Number: BG-TEVA-2022-BG-2082322

PATIENT
  Age: 57 Year
  Sex: Male

DRUGS (1)
  1. HYDROCHLOROTHIAZIDE\VALSARTAN [Suspect]
     Active Substance: HYDROCHLOROTHIAZIDE\VALSARTAN
     Indication: Hypertension
     Route: 065
     Dates: start: 201503

REACTIONS (1)
  - Symmetrical drug-related intertriginous and flexural exanthema [Recovering/Resolving]
